FAERS Safety Report 9012690 (Version 1)
Quarter: 2013Q1

REPORT INFORMATION
  Report Type: Spontaneous
  Country: US (occurrence: US)
  Receive Date: 20130114
  Receipt Date: 20130114
  Transmission Date: 20140127
  Serious: Yes (Other)
  Sender: FDA-Public Use
  Company Number: US-009507513-1301USA002040

PATIENT
  Age: 46 Year
  Sex: Male

DRUGS (4)
  1. SINGULAIR [Suspect]
     Dosage: 10 MG, OD
     Route: 048
  2. RHINOCORT [Suspect]
     Indication: ASTHMA
     Dosage: 64 NG, OD
     Route: 050
  3. SERETIDE [Suspect]
     Dosage: INHALATION
     Route: 055
  4. VENTOLIN (ALBUTEROL) [Suspect]
     Dosage: INHALATION
     Route: 055

REACTIONS (3)
  - Sensory loss [Unknown]
  - Paraesthesia [Unknown]
  - Musculoskeletal pain [Unknown]
